FAERS Safety Report 9680965 (Version 1)
Quarter: 2013Q4

REPORT INFORMATION
  Report Type: Spontaneous
  Country: DE (occurrence: DE)
  Receive Date: 20131111
  Receipt Date: 20131111
  Transmission Date: 20140711
  Serious: Yes (Hospitalization, Disabling)
  Sender: FDA-Public Use
  Company Number: DE-MERCK-1311DEU002788

PATIENT
  Age: 75 Year
  Sex: Male
  Weight: 97.5 kg

DRUGS (9)
  1. XELEVIA [Suspect]
     Dosage: 50 MG, 1X1
     Route: 048
     Dates: start: 20130915, end: 20131008
  2. SIFROL [Concomitant]
     Dosage: 0.45 MG, QD
  3. MARCUMAR [Concomitant]
  4. BICALUTAMIDE [Concomitant]
     Dosage: 150 MG, QD
  5. VALDOXAN [Concomitant]
     Dosage: 25 MG, EVERY OTHER DAY
  6. FUROSEMIDE [Concomitant]
     Dosage: 80 MG, QD
  7. BELOC-ZOK [Concomitant]
     Dosage: 190 MG, QD
  8. CANDESARTAN [Concomitant]
     Dosage: 8 MG, QD
  9. NOVODIGAL [Concomitant]
     Dosage: 0.2 MG, QD

REACTIONS (2)
  - Arthralgia [Not Recovered/Not Resolved]
  - Joint swelling [Not Recovered/Not Resolved]
